FAERS Safety Report 4597211-1 (Version None)
Quarter: 2005Q1

REPORT INFORMATION
  Report Type: 
  Country: None (occurrence: None)
  Receive Date: 20050301
  Receipt Date: 20050221
  Transmission Date: 20050727
  Serious: Yes (Hospitalization)
  Sender: FDA-Public Use
  Company Number: 2005CG00386

PATIENT
  Age: 52 Year
  Sex: Male

DRUGS (10)
  1. ATACAND [Suspect]
     Dosage: 16 MG QD PO
     Route: 048
     Dates: start: 20050121, end: 20050125
  2. ISKEDYL [Suspect]
     Dates: end: 20050125
  3. VASTAREL [Suspect]
     Dosage: 70 MG QD PO
     Route: 048
     Dates: end: 20050125
  4. DENTENSIEL [Suspect]
     Dosage: 1 DF QD PO
     Route: 048
     Dates: start: 20050121, end: 20050125
  5. ZEFFIX [Suspect]
     Dosage: 100 MG QD PO
     Route: 048
     Dates: start: 20030315, end: 20050125
  6. FOZITEC [Suspect]
     Indication: HYPERTENSION
     Dates: end: 20050121
  7. METEOXANE [Concomitant]
  8. TANAKAN [Concomitant]
  9. NOOTROPYL [Concomitant]
  10. ATEPADENE [Concomitant]

REACTIONS (11)
  - ASCITES [None]
  - ATRIAL FIBRILLATION [None]
  - BLOOD FIBRINOGEN DECREASED [None]
  - BLOOD PRESSURE DIASTOLIC DECREASED [None]
  - CYTOLYTIC HEPATITIS [None]
  - HAEMODIALYSIS [None]
  - HEPATIC INFARCTION [None]
  - HYPERPHOSPHATAEMIA [None]
  - LACTIC ACIDOSIS [None]
  - OEDEMA [None]
  - RENAL FAILURE ACUTE [None]
